FAERS Safety Report 14376631 (Version 2)
Quarter: 2018Q1

REPORT INFORMATION
  Report Type: Spontaneous
  Country: US (occurrence: US)
  Receive Date: 20180111
  Receipt Date: 20180111
  Transmission Date: 20180509
  Serious: No
  Sender: FDA-Public Use
  Company Number: US-DRREDDYS-USA/USA/17/0088406

PATIENT
  Age: 54 Year
  Sex: Female
  Weight: 66.22 kg

DRUGS (5)
  1. VITAMIN C [Concomitant]
     Active Substance: ASCORBIC ACID
     Indication: PRODUCT USED FOR UNKNOWN INDICATION
     Route: 065
  2. NICOTINE. [Suspect]
     Active Substance: NICOTINE
     Indication: SMOKING CESSATION THERAPY
     Route: 061
  3. NICOTINE. [Suspect]
     Active Substance: NICOTINE
     Route: 065
  4. NICOTINE. [Suspect]
     Active Substance: NICOTINE
     Route: 061
     Dates: start: 201703
  5. LORATADINE. [Concomitant]
     Active Substance: LORATADINE
     Indication: PRODUCT USED FOR UNKNOWN INDICATION
     Route: 065

REACTIONS (8)
  - Feeling abnormal [Not Recovered/Not Resolved]
  - Paraesthesia [Not Recovered/Not Resolved]
  - Therapeutic response increased [Unknown]
  - Product adhesion issue [Unknown]
  - Withdrawal syndrome [Unknown]
  - Drug dose omission [Unknown]
  - Heart rate increased [Not Recovered/Not Resolved]
  - Nicotine dependence [Unknown]

NARRATIVE: CASE EVENT DATE: 20170325
